FAERS Safety Report 4730023-4 (Version None)
Quarter: 2005Q3

REPORT INFORMATION
  Report Type: 
  Country: None (occurrence: None)
  Receive Date: 20050728
  Receipt Date: 20050728
  Transmission Date: 20060218
  Serious: No
  Sender: FDA-Public Use
  Company Number: None

PATIENT
  Age: 58 Year
  Sex: Male

DRUGS (2)
  1. TIMENTIN [Suspect]
     Indication: CELLULITIS
     Dosage: 31G Q8H
  2. TIMENTIN [Suspect]
     Indication: DIABETES MELLITUS
     Dosage: 31G Q8H

REACTIONS (1)
  - RASH [None]
